FAERS Safety Report 7892910-8 (Version None)
Quarter: 2011Q4

REPORT INFORMATION
  Report Type: 
  Country: None (occurrence: None)
  Receive Date: 20111104
  Receipt Date: 20111102
  Transmission Date: 20120403
  Serious: Yes (Congenital Anomaly, Other)
  Sender: FDA-Public Use
  Company Number: US-PFIZER INC-2011268670

PATIENT
  Sex: Female
  Weight: 3.628 kg

DRUGS (1)
  1. ZOLOFT [Suspect]
     Dosage: 100 MG, 2X/DAY
     Route: 064
     Dates: start: 20090901, end: 20091101

REACTIONS (5)
  - CARDIAC VALVE DISEASE [None]
  - CARDIAC SEPTAL DEFECT [None]
  - BRAIN OEDEMA [None]
  - MATERNAL EXPOSURE DURING PREGNANCY [None]
  - PREMATURE DELIVERY [None]
